FAERS Safety Report 21851668 (Version 1)
Quarter: 2023Q1

REPORT INFORMATION
  Report Type: Report from Study
  Country: US (occurrence: US)
  Receive Date: 20230112
  Receipt Date: 20230112
  Transmission Date: 20230418
  Serious: No
  Sender: FDA-Public Use
  Company Number: US-ABBVIE-4233465

PATIENT
  Sex: Female

DRUGS (1)
  1. HUMIRA [Suspect]
     Active Substance: ADALIMUMAB
     Indication: Rheumatoid arthritis
     Dosage: 40 MG?CITRATE FREE
     Route: 058

REACTIONS (8)
  - Dysstasia [Unknown]
  - Injection site swelling [Recovering/Resolving]
  - Back pain [Unknown]
  - Gait disturbance [Unknown]
  - Pain in extremity [Unknown]
  - Injection site pain [Recovering/Resolving]
  - Pain in extremity [Unknown]
  - Arthralgia [Unknown]
